FAERS Safety Report 5691520-0 (Version None)
Quarter: 2008Q2

REPORT INFORMATION
  Report Type: 
  Country: None (occurrence: None)
  Receive Date: 20080402
  Receipt Date: 20080328
  Transmission Date: 20081010
  Serious: Yes (Hospitalization)
  Sender: FDA-Public Use
  Company Number: PHNU2008DE00604

PATIENT
  Age: 54 Year
  Sex: Female
  Weight: 59 kg

DRUGS (4)
  1. SANDIMMUNE [Suspect]
     Indication: RENAL TRANSPLANT
     Dosage: 180 MG/DAY
     Route: 048
     Dates: start: 20061201, end: 20080218
  2. CELLCEPT [Concomitant]
  3. PREDNISOLONE [Concomitant]
  4. CORTISONE [Concomitant]

REACTIONS (6)
  - BRADYPHRENIA [None]
  - HALLUCINATION [None]
  - HYPOKINESIA [None]
  - MENTAL DISORDER [None]
  - NEUROTOXICITY [None]
  - SPEECH DISORDER [None]
